FAERS Safety Report 25304784 (Version 1)
Quarter: 2025Q2

REPORT INFORMATION
  Report Type: Spontaneous
  Country: FR (occurrence: FR)
  Receive Date: 20250513
  Receipt Date: 20250513
  Transmission Date: 20250716
  Serious: Yes (Life-Threatening, Other)
  Sender: CHEPLAPHARM
  Company Number: None

PATIENT
  Age: 25 Year
  Sex: Male

DRUGS (14)
  1. CLONAZEPAM [Suspect]
     Active Substance: CLONAZEPAM
     Route: 048
     Dates: start: 2020
  2. CLONAZEPAM [Suspect]
     Active Substance: CLONAZEPAM
     Route: 048
     Dates: start: 202404
  3. CLONAZEPAM [Suspect]
     Active Substance: CLONAZEPAM
     Route: 048
     Dates: start: 20240531
  4. DIAZEPAM [Suspect]
     Active Substance: DIAZEPAM
     Indication: Toxicity to various agents
     Route: 048
     Dates: start: 2020
  5. DIAZEPAM [Suspect]
     Active Substance: DIAZEPAM
     Indication: Toxicity to various agents
     Route: 048
     Dates: start: 202404
  6. DIAZEPAM [Suspect]
     Active Substance: DIAZEPAM
     Indication: Toxicity to various agents
     Route: 048
     Dates: start: 202410
  7. PREGABALIN [Suspect]
     Active Substance: PREGABALIN
     Dosage: SELF-MEDICATION, BOUGHT ON THE STREET WITH DAILY CONSUMPTION OF 5 300 MG TABLETS/DAY
     Route: 048
     Dates: start: 202404
  8. PREGABALIN [Suspect]
     Active Substance: PREGABALIN
     Route: 048
     Dates: start: 20240531
  9. COCAINE [Suspect]
     Active Substance: COCAINE
     Indication: Toxicity to various agents
     Dosage: 4 TO 6G/WEEK
     Route: 045
     Dates: start: 2022
  10. COCAINE [Suspect]
     Active Substance: COCAINE
     Indication: Toxicity to various agents
     Route: 045
     Dates: start: 202404
  11. COCAINE [Suspect]
     Active Substance: COCAINE
     Indication: Toxicity to various agents
     Route: 045
     Dates: start: 202410
  12. SUBUTEX [Suspect]
     Active Substance: BUPRENORPHINE HYDROCHLORIDE
     Route: 048
     Dates: start: 20240531
  13. NITROUS OXIDE [Suspect]
     Active Substance: NITROUS OXIDE
     Route: 055
     Dates: start: 20240414
  14. ALCOHOL [Concomitant]
     Active Substance: ALCOHOL
     Indication: Toxicity to various agents
     Dates: start: 202410

REACTIONS (13)
  - Toxicity to various agents [Recovering/Resolving]
  - Impulse-control disorder [Recovering/Resolving]
  - Hallucination, visual [Recovering/Resolving]
  - Suicidal ideation [Unknown]
  - Intentional self-injury [Unknown]
  - Suicide attempt [Unknown]
  - Intentional product misuse [Recovering/Resolving]
  - Self-medication [Recovering/Resolving]
  - Substance use [Recovering/Resolving]
  - Overdose [Recovering/Resolving]
  - Somnolence [Unknown]
  - Nausea [Recovering/Resolving]
  - Toxicity to various agents [Unknown]

NARRATIVE: CASE EVENT DATE: 20240401
